FAERS Safety Report 8181010-8 (Version None)
Quarter: 2012Q1

REPORT INFORMATION
  Report Type: 
  Country: None (occurrence: None)
  Receive Date: 20120301
  Receipt Date: 20120301
  Transmission Date: 20120608
  Serious: Yes (Other)
  Sender: FDA-Public Use
  Company Number: None

PATIENT
  Age: 62 Year
  Sex: Female
  Weight: 93.441 kg

DRUGS (2)
  1. FERAHEME 510 NG Q 1-2 WKS IV PUSH AMAG [Suspect]
     Dosage: 510 MG Q 1-2 WKS IV PUSH
     Route: 042
     Dates: start: 20120206
  2. FERAHEME 510 NG Q 1-2 WKS IV PUSH AMAG [Suspect]
     Dosage: 510 MG Q 1-2 WKS IV PUSH
     Route: 042
     Dates: start: 20120221

REACTIONS (5)
  - BLOOD PRESSURE SYSTOLIC INCREASED [None]
  - CHILLS [None]
  - VOMITING [None]
  - NAUSEA [None]
  - HEADACHE [None]
